FAERS Safety Report 10706407 (Version 2)
Quarter: 2015Q1

REPORT INFORMATION
  Report Type: Spontaneous
  Country: BR (occurrence: None)
  Receive Date: 20150109
  Receipt Date: 20150120
  Transmission Date: 20150721
  Serious: Yes (Death, Hospitalization, Other)
  Sender: FDA-Public Use
  Company Number: BR-TORRENT-00002760

PATIENT
  Age: 71 Year
  Sex: Female

DRUGS (2)
  1. LABIRIN [Concomitant]
     Active Substance: BETAHISTINE
  2. VENLIFT OD (INN:VENLAFAXINE HYDROCHLORIDE) [Suspect]
     Active Substance: VENLAFAXINE HYDROCHLORIDE
     Indication: DEPRESSION
     Dosage: ONCE DAILY / ORAL
     Route: 048
     Dates: start: 20141220, end: 20141225

REACTIONS (7)
  - Urinary tract infection [None]
  - Myocardial infarction [None]
  - Vomiting [None]
  - Somnolence [None]
  - Coma [None]
  - Dizziness [None]
  - Unresponsive to stimuli [None]

NARRATIVE: CASE EVENT DATE: 201412
